FAERS Safety Report 8327298-1 (Version None)
Quarter: 2012Q2

REPORT INFORMATION
  Report Type: 
  Country: None (occurrence: None)
  Receive Date: 20120502
  Receipt Date: 20120424
  Transmission Date: 20120825
  Serious: Yes (Other)
  Sender: FDA-Public Use
  Company Number: US-AMGEN-USASP2012025962

PATIENT
  Age: 7 Year
  Sex: Male

DRUGS (2)
  1. ENBREL [Suspect]
     Indication: JUVENILE ARTHRITIS
     Dosage: UNK UNK, QWK
     Route: 058
     Dates: start: 20120410
  2. TREXALL [Concomitant]
     Dosage: UNK UNK, QWK
     Route: 058
     Dates: start: 20111001

REACTIONS (6)
  - PAIN [None]
  - DISTURBANCE IN ATTENTION [None]
  - PALLOR [None]
  - ARTHRALGIA [None]
  - LETHARGY [None]
  - FEELING ABNORMAL [None]
